FAERS Safety Report 4753807-5 (Version None)
Quarter: 2005Q3

REPORT INFORMATION
  Report Type: 
  Country: None (occurrence: None)
  Receive Date: 20050823
  Receipt Date: 20050712
  Transmission Date: 20060218
  Serious: No
  Sender: FDA-Public Use
  Company Number: 215744

PATIENT
  Age: 51 Year
  Sex: Male
  Weight: 100.7 kg

DRUGS (4)
  1. RAPTIVA [Suspect]
     Indication: PSORIASIS
     Dosage: 1 ML 1/ WEEK SUBCUTANEOUS
     Route: 058
     Dates: start: 20050412
  2. ANTIHYPERTENSIVE MEDS [Concomitant]
  3. CHOLESTEROL LOWERING DRUG NOS [Concomitant]
  4. ANTIDIABETIC DRUG NOS [Concomitant]

REACTIONS (3)
  - EOSINOPHIL COUNT DECREASED [None]
  - LYMPHOCYTE COUNT INCREASED [None]
  - WHITE BLOOD CELL COUNT INCREASED [None]
